FAERS Safety Report 5613959-1 (Version None)
Quarter: 2008Q1

REPORT INFORMATION
  Report Type: 
  Country: None (occurrence: None)
  Receive Date: 20080129
  Receipt Date: 20080110
  Transmission Date: 20080703
  Serious: Yes (Other)
  Sender: FDA-Public Use
  Company Number: 2007JP005703

PATIENT
  Age: 10 Year
  Sex: Female

DRUGS (2)
  1. PROGRAF [Suspect]
     Indication: CORD BLOOD TRANSPLANT THERAPY
     Dosage: 0.03 MG/KG, IV NOS
     Route: 042
  2. PREDNISOLONE [Concomitant]

REACTIONS (5)
  - ACUTE GRAFT VERSUS HOST DISEASE IN SKIN [None]
  - CHEST PAIN [None]
  - DISEASE PROGRESSION [None]
  - PLEURAL EFFUSION [None]
  - PLEURISY [None]
